FAERS Safety Report 8476089-X (Version None)
Quarter: 2012Q2

REPORT INFORMATION
  Report Type: 
  Country: None (occurrence: None)
  Receive Date: 20120622
  Receipt Date: 20120612
  Transmission Date: 20120825
  Serious: Yes (Hospitalization, Other)
  Sender: FDA-Public Use
  Company Number: 2012000147

PATIENT
  Age: 79 Year
  Sex: Female

DRUGS (12)
  1. BISOPROLOL FUMARATE [Suspect]
     Dosage: 5 MG, QD, ORAL
     Route: 048
     Dates: end: 20120301
  2. LEVOTHYROXINE SODIUM [Concomitant]
  3. ACEON [Suspect]
     Dosage: 5 MG, QD, ORAL
     Route: 048
     Dates: end: 20120301
  4. PROCORALAN (IVABRADINE HYDROCHLORIDE) [Suspect]
     Dosage: 10 MG, QD, ORAL
     Route: 048
     Dates: end: 20120301
  5. LASIX [Suspect]
     Dosage: ORAL
     Route: 048
     Dates: start: 20120229, end: 20120301
  6. NITROGLYCERIN [Suspect]
     Dosage: TRANSDERMAL
     Route: 062
     Dates: end: 20120301
  7. KARDEGIC (ACETYLSALICYLATE LYSINE) [Concomitant]
  8. STAGID (METFORMIN EMBONATE) [Concomitant]
  9. ADANCOR (NICORANDIL) [Suspect]
     Dosage: 20 MG, QD, ORAL
     Route: 048
     Dates: end: 20120301
  10. SIMVASTATIN [Suspect]
     Dosage: 20 MG, QD, ORAL
     Route: 048
     Dates: end: 20120301
  11. MOXYDAR (ALUMINIUM HYDROXIDE, ALUMINIUM PHOSPHATE, CYAMOPSIS TETRAGONO [Suspect]
     Dosage: ORAL
     Route: 048
     Dates: end: 20120301
  12. PLAVIX [Concomitant]

REACTIONS (4)
  - DISSOCIATION [None]
  - DERMATITIS BULLOUS [None]
  - SKIN EXFOLIATION [None]
  - URTICARIA [None]
